FAERS Safety Report 11510718 (Version 1)
Quarter: 2015Q3

REPORT INFORMATION
  Report Type: Spontaneous
  Country: US (occurrence: US)
  Receive Date: 20150915
  Receipt Date: 20150915
  Transmission Date: 20151125
  Serious: Yes (Hospitalization)
  Sender: FDA-Public Use
  Company Number: US-FRESENIUS KABI-FK201504362

PATIENT
  Sex: Female
  Weight: 115.7 kg

DRUGS (6)
  1. CEFTAROLINE [Suspect]
     Active Substance: CEFTAROLINE
     Indication: ABSCESS
  2. CEFTAROLINE [Suspect]
     Active Substance: CEFTAROLINE
     Indication: CELLULITIS
     Route: 065
  3. CLINDAMYCIN [Suspect]
     Active Substance: CLINDAMYCIN\CLINDAMYCIN PHOSPHATE
     Indication: CELLULITIS
     Route: 065
  4. CLINDAMYCIN [Suspect]
     Active Substance: CLINDAMYCIN\CLINDAMYCIN PHOSPHATE
     Indication: ABSCESS
  5. CEFTAROLINE [Suspect]
     Active Substance: CEFTAROLINE
     Indication: NECROTISING FASCIITIS
  6. CLINDAMYCIN [Suspect]
     Active Substance: CLINDAMYCIN\CLINDAMYCIN PHOSPHATE
     Indication: NECROTISING FASCIITIS

REACTIONS (2)
  - Potentiating drug interaction [Recovered/Resolved]
  - Agranulocytosis [Recovered/Resolved]
